FAERS Safety Report 5081254-8 (Version None)
Quarter: 2006Q3

REPORT INFORMATION
  Report Type: 
  Country: None (occurrence: None)
  Receive Date: 20060816
  Receipt Date: 20060807
  Transmission Date: 20061208
  Serious: Yes (Hospitalization)
  Sender: FDA-Public Use
  Company Number: FRWYE576408AUG06

PATIENT
  Age: 33 Year
  Sex: Female

DRUGS (3)
  1. ENBREL [Suspect]
     Indication: ANKYLOSING SPONDYLITIS
     Dosage: 1 DOSE WEEKLY
     Route: 058
     Dates: start: 20050201
  2. IMOVANE [Suspect]
     Indication: INSOMNIA
     Route: 048
  3. PROPOFOL [Suspect]
     Dosage: 6 TABLETS TOTAL DAILY
     Route: 048

REACTIONS (5)
  - ANXIETY [None]
  - COMA [None]
  - CONDITION AGGRAVATED [None]
  - CONFUSIONAL STATE [None]
  - DEPRESSION [None]
